FAERS Safety Report 9050028 (Version 1)
Quarter: 2013Q1

REPORT INFORMATION
  Report Type: Spontaneous
  Country: US (occurrence: US)
  Receive Date: 20130205
  Receipt Date: 20130205
  Transmission Date: 20140127
  Serious: No
  Sender: FDA-Public Use
  Company Number: US-GLAXOSMITHKLINE-A0997324A

PATIENT
  Sex: Female

DRUGS (1)
  1. ARIXTRA [Suspect]
     Indication: THROMBOSIS
     Route: 065

REACTIONS (4)
  - Contusion [Unknown]
  - Local swelling [Unknown]
  - Thrombosis [Unknown]
  - Drug ineffective [Unknown]
